FAERS Safety Report 13983880 (Version 1)
Quarter: 2017Q3

REPORT INFORMATION
  Report Type: Spontaneous
  Country: US (occurrence: US)
  Receive Date: 20170918
  Receipt Date: 20170918
  Transmission Date: 20171128
  Serious: Yes (Hospitalization, Congenital Anomaly, Other)
  Sender: FDA-Public Use
  Company Number: PHHY2015US131608

PATIENT
  Age: 0 Year
  Sex: Female

DRUGS (12)
  1. MAGNESIUM [Concomitant]
     Active Substance: MAGNESIUM
     Indication: PRODUCT USED FOR UNKNOWN INDICATION
     Route: 065
  2. FIORICET [Concomitant]
     Active Substance: ACETAMINOPHEN\BUTALBITAL\CAFFEINE
     Indication: PRODUCT USED FOR UNKNOWN INDICATION
     Route: 065
  3. AMBIEN [Concomitant]
     Active Substance: ZOLPIDEM TARTRATE
     Indication: PRODUCT USED FOR UNKNOWN INDICATION
     Route: 065
  4. BICITRA [Concomitant]
     Active Substance: CITRIC ACID, 1-STEARYL ESTER\SODIUM CITRATE
     Indication: PRODUCT USED FOR UNKNOWN INDICATION
     Route: 065
  5. LABETALOL [Concomitant]
     Active Substance: LABETALOL\LABETALOL HYDROCHLORIDE
     Indication: PRODUCT USED FOR UNKNOWN INDICATION
     Route: 065
  6. ZOFRAN [Suspect]
     Active Substance: ONDANSETRON HYDROCHLORIDE
     Indication: FOETAL EXPOSURE DURING PREGNANCY
     Dosage: MOTHER^S DOSE: UNK, UNK, PRN
     Route: 064
  7. ONDANSETRON HYDROCHLORIDE. [Suspect]
     Active Substance: ONDANSETRON HYDROCHLORIDE
     Indication: FOETAL EXPOSURE DURING PREGNANCY
     Route: 064
  8. BETAMETHASONE. [Concomitant]
     Active Substance: BETAMETHASONE
     Indication: PRODUCT USED FOR UNKNOWN INDICATION
     Route: 065
  9. TORADOL [Concomitant]
     Active Substance: KETOROLAC TROMETHAMINE
     Indication: PRODUCT USED FOR UNKNOWN INDICATION
     Route: 065
  10. ZOFRAN [Suspect]
     Active Substance: ONDANSETRON HYDROCHLORIDE
     Indication: FOETAL EXPOSURE DURING PREGNANCY
     Route: 064
  11. APRESOLINE HYDROCHLORIDE [Concomitant]
     Active Substance: HYDRALAZINE HYDROCHLORIDE
     Indication: PRODUCT USED FOR UNKNOWN INDICATION
     Route: 065
  12. ZENPEP [Concomitant]
     Active Substance: PANCRELIPASE AMYLASE\PANCRELIPASE LIPASE\PANCRELIPASE PROTEASE
     Indication: PRODUCT USED FOR UNKNOWN INDICATION
     Route: 065

REACTIONS (74)
  - Left-to-right cardiac shunt [Unknown]
  - Jaundice cholestatic [Recovered/Resolved]
  - Hyponatraemia [Recovered/Resolved]
  - Small intestinal obstruction [Unknown]
  - Intestinal ischaemia [Unknown]
  - Foetal growth restriction [Unknown]
  - Nasal congestion [Unknown]
  - Rales [Unknown]
  - Decubitus ulcer [Unknown]
  - Dyspnoea [Unknown]
  - Congenital anomaly [Unknown]
  - Meconium plug syndrome [Recovered/Resolved]
  - Hypoglycaemia [Recovered/Resolved]
  - Thrombocytopenia [Recovered/Resolved]
  - Haemorrhage intracranial [Unknown]
  - Foetal exposure during pregnancy [Unknown]
  - Cardiac murmur [Not Recovered/Not Resolved]
  - Rash erythematous [Unknown]
  - Rash papular [Unknown]
  - Pain [Unknown]
  - Patent ductus arteriosus [Recovered/Resolved]
  - Laevocardia [Unknown]
  - Hypotension [Recovered/Resolved]
  - Peritonitis [Unknown]
  - Hypothermia [Unknown]
  - Left atrial enlargement [Unknown]
  - Increased upper airway secretion [Unknown]
  - Diarrhoea [Recovering/Resolving]
  - Wheezing [Unknown]
  - Nasal flaring [Unknown]
  - Anaemia [Unknown]
  - Ileus [Recovered/Resolved]
  - Neutropenia [Recovered/Resolved]
  - Premature baby [Unknown]
  - Anuria [Recovered/Resolved]
  - Respiratory syncytial virus bronchiolitis [Unknown]
  - Encephalomalacia [Unknown]
  - Dermatitis diaper [Unknown]
  - Cough [Unknown]
  - Motor developmental delay [Unknown]
  - Pulmonary valve incompetence [Recovered/Resolved]
  - Cognitive disorder [Unknown]
  - Haematochezia [Unknown]
  - Retinopathy of prematurity [Unknown]
  - Placental insufficiency [Unknown]
  - Blood bilirubin increased [Recovered/Resolved]
  - Hepatic enzyme increased [Unknown]
  - Inability to crawl [Unknown]
  - Urine output decreased [Unknown]
  - Neonatal hypoxia [Unknown]
  - Renal tubular necrosis [Recovered/Resolved]
  - Respiratory distress [Recovered/Resolved]
  - Sepsis [Recovered/Resolved]
  - Lung infiltration [Unknown]
  - Emotional distress [Unknown]
  - Underweight [Unknown]
  - Cardiomegaly [Unknown]
  - Brain natriuretic peptide increased [Recovered/Resolved]
  - Productive cough [Unknown]
  - Pancreatic failure [Unknown]
  - Upper respiratory tract infection [Unknown]
  - Intraventricular haemorrhage neonatal [Unknown]
  - Hyperbilirubinaemia [Unknown]
  - Mitral valve incompetence [Unknown]
  - Pharyngitis [Unknown]
  - Metabolic acidosis [Recovered/Resolved]
  - Purpura [Unknown]
  - Use of accessory respiratory muscles [Unknown]
  - Rash [Unknown]
  - Tricuspid valve incompetence [Unknown]
  - Traumatic liver injury [Unknown]
  - Buttock injury [Unknown]
  - Abdominal distension [Unknown]
  - Chronic respiratory disease [Unknown]

NARRATIVE: CASE EVENT DATE: 201410
